FAERS Safety Report 14202310 (Version 2)
Quarter: 2017Q4

REPORT INFORMATION
  Report Type: Spontaneous
  Country: US (occurrence: US)
  Receive Date: 20171117
  Receipt Date: 20171221
  Transmission Date: 20180321
  Serious: No
  Sender: FDA-Public Use
  Company Number: US-ACTELION-A-NJ2017-162758

PATIENT
  Age: 63 Year
  Sex: Female

DRUGS (1)
  1. VALCHLOR [Suspect]
     Active Substance: MECHLORETHAMINE
     Indication: MYCOSIS FUNGOIDES
     Dosage: 0.016 %, UNK
     Route: 061
     Dates: start: 20170928

REACTIONS (6)
  - Pruritus [Unknown]
  - Skin hyperpigmentation [Unknown]
  - Alopecia [Recovering/Resolving]
  - Rash [Unknown]
  - Burning sensation [Unknown]
  - Blister [Unknown]
